FAERS Safety Report 9888288 (Version 1)
Quarter: 2014Q1

REPORT INFORMATION
  Report Type: Spontaneous
  Country: US (occurrence: US)
  Receive Date: 20140211
  Receipt Date: 20140211
  Transmission Date: 20141002
  Serious: No
  Sender: FDA-Public Use
  Company Number: US-PFIZER INC-2014035771

PATIENT
  Age: 63 Year
  Sex: Female

DRUGS (11)
  1. ATIVAN [Suspect]
     Dosage: UNK
  2. METHOTREXATE SODIUM [Suspect]
     Dosage: UNK
  3. ACCUPRIL [Suspect]
     Dosage: UNK
  4. DETROL [Suspect]
     Dosage: UNK
  5. KEFLEX [Suspect]
     Dosage: UNK
  6. CODEINE [Suspect]
     Dosage: UNK
  7. DARVON [Suspect]
     Dosage: UNK
  8. CYMBALTA [Suspect]
     Dosage: UNK
  9. VICODIN [Suspect]
     Dosage: UNK
  10. LOPRESSOR [Suspect]
     Dosage: UNK
  11. BYSTOLIC [Suspect]
     Dosage: UNK

REACTIONS (1)
  - Drug hypersensitivity [Unknown]
